FAERS Safety Report 9808475 (Version 1)
Quarter: 2014Q1

REPORT INFORMATION
  Report Type: Spontaneous
  Country: US (occurrence: US)
  Receive Date: 20140110
  Receipt Date: 20140110
  Transmission Date: 20141002
  Serious: No
  Sender: FDA-Public Use
  Company Number: US-GILEAD-2010-0028054

PATIENT
  Age: 41 Year
  Sex: Male

DRUGS (3)
  1. VIREAD [Suspect]
     Indication: HIV INFECTION
  2. RALTEGRAVIR [Concomitant]
  3. ABACAVIR [Concomitant]

REACTIONS (2)
  - Rash [Unknown]
  - Oral mucosal blistering [Unknown]
